FAERS Safety Report 7343004-1 (Version None)
Quarter: 2011Q1

REPORT INFORMATION
  Report Type: 
  Country: None (occurrence: None)
  Receive Date: 20110310
  Receipt Date: 20110228
  Transmission Date: 20110831
  Serious: Yes (Other)
  Sender: FDA-Public Use
  Company Number: CA-JNJFOC-20110301423

PATIENT
  Sex: Female
  Weight: 55 kg

DRUGS (14)
  1. LYRICA [Concomitant]
  2. ATENOLOL [Concomitant]
  3. ACTONEL [Concomitant]
  4. LOVENOX [Concomitant]
     Route: 058
  5. CALCITONIN [Concomitant]
     Route: 045
  6. REMICADE [Suspect]
     Indication: RHEUMATOID ARTHRITIS
     Route: 042
  7. NOVOSPIROTON [Concomitant]
  8. TRIDURAL [Concomitant]
  9. CRESTOR [Concomitant]
  10. WARFARIN [Concomitant]
  11. PREVACID [Concomitant]
  12. CYMBALTA [Concomitant]
  13. CODEINE CONTIN [Concomitant]
     Dosage: 2 IN AM AND 1 HS
  14. BISOPROLOL FUMARATE [Concomitant]
     Dosage: 5 MG TABLET

REACTIONS (3)
  - MOBILITY DECREASED [None]
  - BREAST DISCOLOURATION [None]
  - OEDEMA PERIPHERAL [None]
